FAERS Safety Report 15764561 (Version 1)
Quarter: 2018Q4

REPORT INFORMATION
  Report Type: Spontaneous
  Country: US (occurrence: US)
  Receive Date: 20181227
  Receipt Date: 20181227
  Transmission Date: 20190205
  Serious: No
  Sender: FDA-Public Use
  Company Number: US-009507513-1812USA003744

PATIENT
  Sex: Female

DRUGS (1)
  1. NEXPLANON [Suspect]
     Active Substance: ETONOGESTREL
     Dosage: 1 DOSAGE FORM, UNK
     Route: 059
     Dates: start: 201710

REACTIONS (3)
  - Implant site swelling [Recovered/Resolved]
  - Device breakage [Unknown]
  - Device kink [Unknown]
